FAERS Safety Report 5107049-4 (Version None)
Quarter: 2006Q3

REPORT INFORMATION
  Report Type: 
  Country: None (occurrence: None)
  Receive Date: 20060913
  Receipt Date: 20060828
  Transmission Date: 20061208
  Serious: Yes (Hospitalization)
  Sender: FDA-Public Use
  Company Number: US200608006047

PATIENT
  Age: 40 Year
  Sex: Female

DRUGS (3)
  1. CYMBALTA [Suspect]
     Indication: DEPRESSION
     Dosage: 60 MG
     Dates: start: 20060731, end: 20060801
  2. LEXAPRO [Concomitant]
  3. SEROQUEL [Concomitant]

REACTIONS (2)
  - NEUROGENIC BLADDER [None]
  - WEIGHT INCREASED [None]
